FAERS Safety Report 18768420 (Version 4)
Quarter: 2022Q1

REPORT INFORMATION
  Report Type: Report from Study
  Country: JP (occurrence: JP)
  Receive Date: 20210121
  Receipt Date: 20220208
  Transmission Date: 20220423
  Serious: Yes (Death, Hospitalization, Other)
  Sender: FDA-Public Use
  Company Number: JP-KYOWAKIRIN-2021AKK000797

PATIENT

DRUGS (46)
  1. MOGAMULIZUMAB [Suspect]
     Active Substance: MOGAMULIZUMAB
     Indication: Adult T-cell lymphoma/leukaemia
     Dosage: 1 MG/KG
     Route: 041
     Dates: start: 20161228, end: 20161228
  2. MOGAMULIZUMAB [Suspect]
     Active Substance: MOGAMULIZUMAB
     Dosage: 1 MG/KG
     Route: 041
     Dates: start: 20161123, end: 20161123
  3. POLARAMINE [Concomitant]
     Active Substance: DEXCHLORPHENIRAMINE MALEATE
     Indication: Prophylaxis
     Dosage: 5 MG
     Route: 065
     Dates: start: 20161123, end: 20161123
  4. POLARAMINE [Concomitant]
     Active Substance: DEXCHLORPHENIRAMINE MALEATE
     Dosage: 5 UNK
     Route: 065
     Dates: start: 20161228, end: 20161228
  5. DEXAMETHASONE SODIUM PHOSPHATE [Concomitant]
     Active Substance: DEXAMETHASONE SODIUM PHOSPHATE
     Indication: Prophylaxis
     Dosage: 6.6 MG
     Route: 065
     Dates: start: 20161123, end: 20161123
  6. DEXAMETHASONE SODIUM PHOSPHATE [Concomitant]
     Active Substance: DEXAMETHASONE SODIUM PHOSPHATE
     Dosage: 6.6 MG
     Route: 065
     Dates: start: 20161228, end: 20161228
  7. ISCOTIN [Concomitant]
     Active Substance: ISONIAZID
     Indication: Infection prophylaxis
     Dosage: UNK
     Route: 048
     Dates: start: 20161121, end: 20170117
  8. FLUCONAZOLE [Concomitant]
     Active Substance: FLUCONAZOLE
     Indication: Infection prophylaxis
     Dosage: UNK
     Route: 048
     Dates: start: 20161121, end: 20161126
  9. ITRACONAZOLE [Concomitant]
     Active Substance: ITRACONAZOLE
     Indication: Infection prophylaxis
     Dosage: UNK
     Route: 048
     Dates: start: 20161127, end: 20170117
  10. CEFDINIR [Concomitant]
     Active Substance: CEFDINIR
     Indication: Infection prophylaxis
     Dosage: UNK
     Route: 048
     Dates: start: 20161214, end: 20161216
  11. SULFAMETHOXAZOLE\TRIMETHOPRIM [Concomitant]
     Active Substance: SULFAMETHOXAZOLE\TRIMETHOPRIM
     Indication: Infection prophylaxis
     Dosage: UNK
     Route: 048
     Dates: start: 20161121, end: 20170117
  12. MICAFUNGIN SODIUM [Concomitant]
     Active Substance: MICAFUNGIN SODIUM
     Indication: Infection prophylaxis
     Dosage: UNK
     Route: 065
     Dates: start: 20161206, end: 20170118
  13. MAXIPIME [Concomitant]
     Active Substance: CEFEPIME HYDROCHLORIDE
     Indication: Infection prophylaxis
     Dosage: UNK
     Route: 065
     Dates: start: 20161203, end: 20170118
  14. AMLODIPINE [Concomitant]
     Active Substance: AMLODIPINE BESYLATE
     Dosage: UNK
     Route: 048
     Dates: end: 20170110
  15. MIYA-BM [Concomitant]
     Active Substance: CLOSTRIDIUM BUTYRICUM SPORES STRAIN M-55
     Indication: Prophylaxis
     Dosage: UNK
     Route: 048
     Dates: end: 20170115
  16. UBIDECARENONE [Concomitant]
     Active Substance: UBIDECARENONE
     Indication: Prophylaxis
     Dosage: UNK
     Route: 048
     Dates: end: 20170117
  17. RABEPRAZOLE SODIUM [Concomitant]
     Active Substance: RABEPRAZOLE SODIUM
     Indication: Prophylaxis
     Dosage: UNK
     Route: 048
     Dates: end: 20170117
  18. ALFACALCIDOL [Concomitant]
     Active Substance: ALFACALCIDOL
     Dosage: UNK
     Route: 048
     Dates: end: 20170117
  19. PREDONINE [Concomitant]
     Active Substance: PREDNISOLONE
     Dosage: UNK
     Route: 048
     Dates: end: 20170117
  20. CELECOXIB [Concomitant]
     Active Substance: CELECOXIB
     Dosage: UNK
     Route: 048
     Dates: end: 20170118
  21. LEVOTHYROXINE SODIUM [Concomitant]
     Active Substance: LEVOTHYROXINE SODIUM
     Dosage: UNK
     Route: 048
     Dates: end: 20170117
  22. FEBUXOSTAT [Concomitant]
     Active Substance: FEBUXOSTAT
     Indication: Prophylaxis
     Dosage: UNK
     Route: 048
     Dates: end: 20170117
  23. FUROSEMIDE [Concomitant]
     Active Substance: FUROSEMIDE
     Indication: Abdominal pain
     Dosage: UNK
     Route: 048
     Dates: start: 20161201, end: 20170117
  24. FUROSEMIDE [Concomitant]
     Active Substance: FUROSEMIDE
     Indication: Abdominal distension
  25. ETIZOLAM [Concomitant]
     Active Substance: ETIZOLAM
     Indication: Insomnia
     Dosage: UNK
     Route: 048
     Dates: start: 20161208, end: 20170110
  26. SAMSCA [Concomitant]
     Active Substance: TOLVAPTAN
     Indication: Abdominal distension
     Dosage: UNK
     Route: 048
     Dates: start: 20161201, end: 20170118
  27. SENNOSIDES A AND B [Concomitant]
     Active Substance: SENNOSIDES A AND B
     Indication: Prophylaxis
     Dosage: UNK
     Route: 048
     Dates: start: 20161125, end: 20161211
  28. LOXOPROFEN [Concomitant]
     Active Substance: LOXOPROFEN
     Indication: Abdominal pain
     Dosage: UNK
     Route: 048
     Dates: start: 20161201, end: 20161219
  29. MAGNESIUM OXIDE [Concomitant]
     Active Substance: MAGNESIUM OXIDE
     Indication: Constipation
     Dosage: UNK
     Route: 048
     Dates: start: 20161125, end: 20170110
  30. GUAIAZULENE [Concomitant]
     Active Substance: GUAIAZULENE
     Indication: Anal erosion
     Dosage: UNK
     Route: 061
     Dates: start: 20170116, end: 20170117
  31. FILGRASTIM [Concomitant]
     Active Substance: FILGRASTIM
     Indication: Prophylaxis
     Dosage: UNK
     Route: 065
     Dates: start: 20161129, end: 20161209
  32. ACETAMINOPHEN [Concomitant]
     Active Substance: ACETAMINOPHEN
     Indication: Pyrexia
     Dosage: UNK
     Route: 042
     Dates: start: 20170116, end: 20170117
  33. ATARAX-P [HYDROXYZINE HYDROCHLORIDE] [Concomitant]
     Indication: Mental disorder
     Dosage: UNK
     Route: 065
     Dates: start: 20170118, end: 20170118
  34. CARBAZOCHROME SODIUM SULFONATE [Concomitant]
     Active Substance: CARBAZOCHROME SODIUM SULFONATE
     Indication: Melaena
     Dosage: UNK
     Route: 065
     Dates: start: 20170113, end: 20170114
  35. AMINO ACIDS\DEXTROSE\ELECTROLYTES NOS\MINERALS\VITAMINS [Concomitant]
     Active Substance: AMINO ACIDS\DEXTROSE\ELECTROLYTES NOS\MINERALS\VITAMINS
     Indication: Nothing by mouth order
     Dosage: UNK
     Route: 065
     Dates: start: 20170115, end: 20170115
  36. AMINO ACIDS\DEXTROSE\ELECTROLYTES NOS\MINERALS\VITAMINS [Concomitant]
     Active Substance: AMINO ACIDS\DEXTROSE\ELECTROLYTES NOS\MINERALS\VITAMINS
     Dosage: UNK
     Route: 065
     Dates: start: 20170116, end: 20170118
  37. GASTER [Concomitant]
     Active Substance: FAMOTIDINE
     Indication: Prophylaxis
     Dosage: UNK
     Route: 065
     Dates: start: 20170118, end: 20170118
  38. SAXIZON [Concomitant]
     Active Substance: HYDROCORTISONE SODIUM SUCCINATE
     Indication: Prophylaxis
     Dosage: UNK
     Route: 065
     Dates: start: 20161201, end: 20170113
  39. SOLDEM 3A [Concomitant]
     Active Substance: CARBOHYDRATES\POTASSIUM CHLORIDE\SODIUM CHLORIDE\SODIUM LACTATE
     Indication: Nothing by mouth order
     Dosage: UNK
     Route: 065
     Dates: start: 20170114, end: 20170115
  40. AMINO ACIDS\DEXTROSE\ELECTROLYTES NOS\VITAMINS [Concomitant]
     Active Substance: AMINO ACIDS\DEXTROSE\ELECTROLYTES NOS\VITAMINS
     Indication: Hypophagia
     Dosage: UNK
     Route: 065
     Dates: start: 20161229, end: 20170115
  41. FUROSEMIDE [Concomitant]
     Active Substance: FUROSEMIDE
     Indication: Abdominal pain
     Dosage: UNK
     Route: 065
     Dates: start: 20161123, end: 20161130
  42. FUROSEMIDE [Concomitant]
     Active Substance: FUROSEMIDE
     Indication: Abdominal distension
     Dosage: UNK
     Route: 065
     Dates: start: 20170117, end: 20170118
  43. FUROSEMIDE [Concomitant]
     Active Substance: FUROSEMIDE
     Indication: Prophylaxis
  44. PRIMPERAN [Concomitant]
     Active Substance: METOCLOPRAMIDE HYDROCHLORIDE
     Indication: Vomiting
     Dosage: UNK
     Route: 065
     Dates: start: 20161126, end: 20161126
  45. CALCIUM CHLORIDE ANHYDROUS\POTASSIUM CHLORIDE\SODIUM CHLORIDE\SODIUM L [Concomitant]
     Active Substance: CALCIUM CHLORIDE ANHYDROUS\POTASSIUM CHLORIDE\SODIUM CHLORIDE\SODIUM LACTATE
     Indication: Prophylaxis
     Dosage: UNK
     Route: 065
     Dates: start: 20170113, end: 20170113
  46. MORPHINE HYDROCHLORIDE [Concomitant]
     Active Substance: MORPHINE HYDROCHLORIDE
     Indication: Dyspnoea
     Dosage: UNK
     Route: 065
     Dates: start: 20170118, end: 20170118

REACTIONS (15)
  - Hepatitis B [Unknown]
  - Pyrexia [Fatal]
  - Dyspnoea [Fatal]
  - Melaena [Recovered/Resolved]
  - Abdominal distension [Not Recovered/Not Resolved]
  - Abdominal pain [Not Recovered/Not Resolved]
  - Anal erosion [Not Recovered/Not Resolved]
  - White blood cell count increased [Recovered/Resolved]
  - Infusion related reaction [Recovered/Resolved]
  - Diarrhoea [Recovered/Resolved]
  - White blood cell count decreased [Recovered/Resolved]
  - Platelet count decreased [Recovered/Resolved]
  - Insomnia [Recovered/Resolved]
  - Constipation [Recovered/Resolved]
  - Pyrexia [Recovered/Resolved]

NARRATIVE: CASE EVENT DATE: 20161125
